FAERS Safety Report 14216176 (Version 2)
Quarter: 2017Q4

REPORT INFORMATION
  Report Type: Report from Study
  Country: BG (occurrence: BG)
  Receive Date: 20171122
  Receipt Date: 20171204
  Transmission Date: 20180321
  Serious: Yes (Hospitalization, Other)
  Sender: FDA-Public Use
  Company Number: BG-BAYER-2017-124571

PATIENT
  Age: 29 Year
  Sex: Male

DRUGS (1)
  1. BETAFERON [Suspect]
     Active Substance: INTERFERON BETA-1B
     Indication: MULTIPLE SCLEROSIS
     Dosage: 1 ML, QOD
     Route: 058
     Dates: start: 20170421, end: 20171001

REACTIONS (13)
  - Drug-induced liver injury [None]
  - Genital pain [Recovering/Resolving]
  - Multiple sclerosis relapse [Recovered/Resolved]
  - Genital hypoaesthesia [Recovering/Resolving]
  - Male sexual dysfunction [Recovering/Resolving]
  - Hypoaesthesia [Recovering/Resolving]
  - Steatohepatitis [None]
  - Multiple sclerosis relapse [Recovering/Resolving]
  - Pain of skin [Recovering/Resolving]
  - Alanine aminotransferase increased [None]
  - Aspartate aminotransferase increased [None]
  - Discomfort [None]
  - Formication [Recovering/Resolving]

NARRATIVE: CASE EVENT DATE: 20170619
